FAERS Safety Report 18988347 (Version 1)
Quarter: 2021Q1

REPORT INFORMATION
  Report Type: Spontaneous
  Country: US (occurrence: US)
  Receive Date: 20210309
  Receipt Date: 20210309
  Transmission Date: 20210420
  Serious: Yes (Other)
  Sender: FDA-Public Use
  Company Number: US-GLAXOSMITHKLINE-US2021056524

PATIENT
  Sex: Female

DRUGS (1)
  1. NUCALA [Suspect]
     Active Substance: MEPOLIZUMAB
     Indication: PRODUCT USED FOR UNKNOWN INDICATION
     Dosage: UNK
     Route: 058
     Dates: start: 20210106, end: 2021

REACTIONS (14)
  - Fatigue [Recovered/Resolved]
  - Insomnia [Recovered/Resolved]
  - Pain in extremity [Recovering/Resolving]
  - Oral candidiasis [Unknown]
  - Myalgia [Not Recovered/Not Resolved]
  - Arthralgia [Recovering/Resolving]
  - Arrhythmia [Unknown]
  - Influenza like illness [Recovered/Resolved]
  - Muscle spasms [Recovering/Resolving]
  - Ageusia [Unknown]
  - Tongue coated [Unknown]
  - Condition aggravated [Unknown]
  - Back pain [Recovering/Resolving]
  - Dysstasia [Recovering/Resolving]

NARRATIVE: CASE EVENT DATE: 2021
